FAERS Safety Report 9254555 (Version 1)
Quarter: 2013Q2

REPORT INFORMATION
  Report Type: Spontaneous
  Country: US (occurrence: US)
  Receive Date: 20130425
  Receipt Date: 20130425
  Transmission Date: 20140414
  Serious: No
  Sender: FDA-Public Use
  Company Number: US-MYLANLABS-2013S1001734

PATIENT
  Sex: Female

DRUGS (4)
  1. BUPROPION HYDROCHLORIDE EXTENDED-RELEASE TABLETS USP, (SR) [Suspect]
     Indication: SMOKING CESSATION THERAPY
     Route: 048
  2. BUPROPION HYDROCHLORIDE EXTENDED-RELEASE TABLETS USP, (SR) [Suspect]
     Indication: OFF LABEL USE
     Route: 048
  3. MONTELUKAST [Concomitant]
     Indication: MULTIPLE ALLERGIES
     Route: 048
     Dates: start: 2012
  4. DOXYCYCLINE [Concomitant]
     Indication: ACNE
     Route: 048

REACTIONS (4)
  - Hypersensitivity [Not Recovered/Not Resolved]
  - Urticaria [Not Recovered/Not Resolved]
  - Pruritus [Not Recovered/Not Resolved]
  - Reaction to drug excipients [Not Recovered/Not Resolved]
